FAERS Safety Report 21220815 (Version 1)
Quarter: 2022Q3

REPORT INFORMATION
  Report Type: Spontaneous
  Country: US (occurrence: US)
  Receive Date: 20220817
  Receipt Date: 20220817
  Transmission Date: 20221027
  Serious: No
  Sender: FDA-Public Use
  Company Number: US-NOVARTISTESTPH-NVSC2022US185545

PATIENT
  Sex: Male

DRUGS (2)
  1. LEQVIO [Suspect]
     Active Substance: INCLISIRAN SODIUM
     Indication: Arteriosclerosis
     Dosage: 284/1.5 MG/ML, (TWICE A YEAR)
     Route: 058
  2. LEQVIO [Suspect]
     Active Substance: INCLISIRAN SODIUM
     Dosage: 284/1.5 MG/ML (TWICE A YEAR)
     Route: 065
     Dates: start: 20220815

REACTIONS (2)
  - Myalgia [Recovering/Resolving]
  - Dyspnoea [Recovering/Resolving]
